FAERS Safety Report 5815347-1 (Version None)
Quarter: 2008Q3

REPORT INFORMATION
  Report Type: 
  Country: None (occurrence: None)
  Receive Date: 20080718
  Receipt Date: 20080708
  Transmission Date: 20090109
  Serious: Yes (Disabling, Other)
  Sender: FDA-Public Use
  Company Number: AU-PFIZER INC-2008042741

PATIENT
  Sex: Female
  Weight: 77 kg

DRUGS (7)
  1. CHANTIX [Suspect]
     Indication: SMOKING CESSATION THERAPY
     Route: 048
     Dates: start: 20080422, end: 20080507
  2. SEROQUEL [Concomitant]
     Indication: DEPRESSION
     Dosage: TEXT:100 MG AT NIGHT
     Route: 048
  3. SEROQUEL [Concomitant]
     Indication: ANXIETY
  4. XANAX [Concomitant]
     Indication: DEPRESSION
     Dosage: TEXT:1MG THREE TIMES DAILY ORALLY
     Route: 048
  5. XANAX [Concomitant]
     Indication: ANXIETY
  6. MOCLOBEMIDE [Concomitant]
     Indication: DEPRESSION
  7. MOCLOBEMIDE [Concomitant]
     Indication: ANXIETY

REACTIONS (7)
  - ACTIVITIES OF DAILY LIVING IMPAIRED [None]
  - AMNESIA [None]
  - ANXIETY [None]
  - COORDINATION ABNORMAL [None]
  - HYPOAESTHESIA [None]
  - SEDATION [None]
  - SOMNOLENCE [None]
